FAERS Safety Report 23601339 (Version 1)
Quarter: 2024Q1

REPORT INFORMATION
  Report Type: Spontaneous
  Country: US (occurrence: None)
  Receive Date: 20240305
  Receipt Date: 20240305
  Transmission Date: 20240409
  Serious: Yes (Death)
  Sender: FDA-Public Use
  Company Number: None

PATIENT
  Age: 84 Year
  Sex: Female

DRUGS (16)
  1. TADALAFIL [Suspect]
     Active Substance: TADALAFIL
     Indication: Pulmonary arterial hypertension
     Dosage: FREQUENCY : DAILY;?
     Route: 048
     Dates: start: 20191105, end: 20240221
  2. TYVASO [Concomitant]
  3. BUMETANIDE [Concomitant]
  4. ONDANSETRON [Concomitant]
  5. CALCIUM CARBONATE [Concomitant]
  6. MIDODRINE [Concomitant]
  7. OXYCODONE [Concomitant]
  8. LACTULOSE [Concomitant]
  9. MIRALAX [Concomitant]
  10. METOLAZONE [Concomitant]
  11. LORAZEPAM [Concomitant]
  12. PHENOBARBITAL [Concomitant]
  13. ACETAMINOPHEN [Concomitant]
  14. BISACODYL [Concomitant]
  15. ATROPINE OPHT DROP [Concomitant]
  16. TADALAFIL [Suspect]
     Active Substance: TADALAFIL
     Indication: Heritable pulmonary arterial hypertension

REACTIONS (1)
  - Chronic respiratory failure [None]

NARRATIVE: CASE EVENT DATE: 20240221
